FAERS Safety Report 16443568 (Version 1)
Quarter: 2019Q2

REPORT INFORMATION
  Report Type: Report from Study
  Country: None (occurrence: CA)
  Receive Date: 20190618
  Receipt Date: 20190618
  Transmission Date: 20190711
  Serious: Yes (Hospitalization)
  Sender: FDA-Public Use
  Company Number: CA-ABBVIE-19K-028-2820177-00

PATIENT
  Age: 38 Year
  Sex: Male

DRUGS (3)
  1. SULFASALAZINE. [Suspect]
     Active Substance: SULFASALAZINE
     Indication: PRODUCT USED FOR UNKNOWN INDICATION
     Route: 065
     Dates: end: 2019
  2. HUMIRA [Suspect]
     Active Substance: ADALIMUMAB
     Indication: SERONEGATIVE ARTHRITIS
     Route: 058
     Dates: start: 20180418, end: 201903
  3. HUMIRA [Suspect]
     Active Substance: ADALIMUMAB
     Route: 058
     Dates: start: 20190604

REACTIONS (6)
  - Diarrhoea [Unknown]
  - Pneumatosis intestinalis [Recovered/Resolved]
  - Fatigue [Recovered/Resolved]
  - Weight decreased [Unknown]
  - Arthritis [Unknown]
  - Food intolerance [Unknown]

NARRATIVE: CASE EVENT DATE: 2019
